FAERS Safety Report 10205095 (Version 3)
Quarter: 2014Q3

REPORT INFORMATION
  Report Type: Report from Study
  Country: CA (occurrence: CA)
  Receive Date: 20140529
  Receipt Date: 20140818
  Transmission Date: 20150326
  Serious: Yes (Other)
  Sender: FDA-Public Use
  Company Number: CA-ROCHE-1123891

PATIENT
  Age: 70 Year
  Sex: Female
  Weight: 49.03 kg

DRUGS (6)
  1. LORAZEPAM. [Concomitant]
     Active Substance: LORAZEPAM
  2. ACTEMRA [Suspect]
     Active Substance: TOCILIZUMAB
     Route: 042
     Dates: start: 20111207, end: 20121205
  3. ACTEMRA [Suspect]
     Active Substance: TOCILIZUMAB
     Indication: RHEUMATOID ARTHRITIS
     Route: 042
     Dates: start: 20110923, end: 20121205
  4. ACTEMRA [Suspect]
     Active Substance: TOCILIZUMAB
     Route: 042
     Dates: start: 20111021
  5. RITUXAN [Suspect]
     Active Substance: RITUXIMAB
     Indication: RHEUMATOID ARTHRITIS
     Dosage: DAY 1 AND DAY 15.
     Route: 042
     Dates: start: 20140730
  6. AMOXICILLIN/CLAVULANATE [Suspect]
     Active Substance: AMOXICILLIN\CLAVULANATE POTASSIUM
     Indication: PRODUCT USED FOR UNKNOWN INDICATION
     Route: 065

REACTIONS (10)
  - Drug hypersensitivity [Unknown]
  - Gastritis [Unknown]
  - Animal bite [Unknown]
  - Gastrointestinal haemorrhage [Unknown]
  - Rheumatoid arthritis [Not Recovered/Not Resolved]
  - Fungal infection [Unknown]
  - Localised infection [Unknown]
  - Constipation [Not Recovered/Not Resolved]
  - Influenza [Recovered/Resolved]
  - Infection [Unknown]

NARRATIVE: CASE EVENT DATE: 201207
